FAERS Safety Report 6022395-8 (Version None)
Quarter: 2008Q4

REPORT INFORMATION
  Report Type: 
  Country: None (occurrence: None)
  Receive Date: 20081230
  Receipt Date: 20081218
  Transmission Date: 20090506
  Serious: Yes (Death, Hospitalization)
  Sender: FDA-Public Use
  Company Number: JP-BAYER-200833310GPV

PATIENT
  Age: 70 Year
  Sex: Male

DRUGS (6)
  1. FLUDARABINE PHOSPHATE [Suspect]
     Indication: BONE MARROW CONDITIONING REGIMEN
     Route: 065
  2. MELPHALAN [Suspect]
     Indication: BONE MARROW CONDITIONING REGIMEN
     Route: 065
  3. TACROLIMUS [Concomitant]
     Indication: PROPHYLAXIS AGAINST GRAFT VERSUS HOST DISEASE
     Route: 065
  4. TACROLIMUS [Concomitant]
     Route: 065
  5. DESMOPRESSIN ACETATE [Concomitant]
     Indication: DIABETES INSIPIDUS
     Route: 065
  6. DESMOPRESSIN ACETATE [Concomitant]
     Route: 065

REACTIONS (5)
  - DIABETES INSIPIDUS [None]
  - DISORIENTATION [None]
  - MEMORY IMPAIRMENT [None]
  - MENINGOENCEPHALITIS HERPETIC [None]
  - THROMBOTIC MICROANGIOPATHY [None]
